FAERS Safety Report 13150132 (Version 1)
Quarter: 2017Q1

REPORT INFORMATION
  Report Type: Spontaneous
  Country: US (occurrence: US)
  Receive Date: 20170125
  Receipt Date: 20170125
  Transmission Date: 20170428
  Serious: Yes (Hospitalization)
  Sender: FDA-Public Use
  Company Number: US-GLAXOSMITHKLINE-US2017006212

PATIENT
  Age: 89 Year
  Sex: Female

DRUGS (2)
  1. CITRUCEL [Suspect]
     Active Substance: METHYLCELLULOSE (4000 MPA.S)
     Indication: SUPPLEMENTATION THERAPY
  2. CITRUCEL [Suspect]
     Active Substance: METHYLCELLULOSE (4000 MPA.S)
     Indication: BOWEL MOVEMENT IRREGULARITY
     Dosage: UNK
     Dates: start: 20161110

REACTIONS (12)
  - Oesophageal pain [Recovered/Resolved]
  - Obstructive airways disorder [Recovered/Resolved]
  - Abdominal discomfort [Unknown]
  - Oesophageal discomfort [Unknown]
  - Dyspnoea [Unknown]
  - Inappropriate schedule of drug administration [Unknown]
  - Hypertension [Recovered/Resolved]
  - Feeling abnormal [Unknown]
  - Incorrect dosage administered [Unknown]
  - Product quality issue [Unknown]
  - Tremor [Recovered/Resolved]
  - Fear [Unknown]

NARRATIVE: CASE EVENT DATE: 20170115
